FAERS Safety Report 17572109 (Version 1)
Quarter: 2020Q1

REPORT INFORMATION
  Report Type: Spontaneous
  Country: US (occurrence: US)
  Receive Date: 20200322
  Receipt Date: 20200322
  Transmission Date: 20200409
  Serious: Yes (Other)
  Sender: FDA-Public Use
  Company Number: None

PATIENT
  Age: 68 Year
  Sex: Male

DRUGS (18)
  1. FASTCLIX [Concomitant]
  2. PRAVASTATIN. [Concomitant]
     Active Substance: PRAVASTATIN
  3. SERTRALINE [Concomitant]
     Active Substance: SERTRALINE HYDROCHLORIDE
  4. HUMIRA [Suspect]
     Active Substance: ADALIMUMAB
     Indication: PRODUCT USED FOR UNKNOWN INDICATION
     Dosage: ?          OTHER FREQUENCY:QOW;?
     Route: 058
     Dates: start: 20200110
  5. SULFASALAZINE DELAYED-RELEASE [Concomitant]
     Active Substance: SULFASALAZINE
  6. CHLORTHALID [Concomitant]
     Active Substance: CHLORTHALIDONE
  7. CYCLOBENZAPR [Concomitant]
     Active Substance: CYCLOBENZAPRINE
  8. FLUCONAZOLE. [Concomitant]
     Active Substance: FLUCONAZOLE
  9. MELOXICAM. [Concomitant]
     Active Substance: MELOXICAM
  10. ROPINROLE [Concomitant]
     Active Substance: ROPINIROLE
  11. TOPIRAMATE. [Concomitant]
     Active Substance: TOPIRAMATE
  12. ATENOLOL. [Concomitant]
     Active Substance: ATENOLOL
  13. ACCU-CHEK [Concomitant]
  14. FLUTICASONE. [Concomitant]
     Active Substance: FLUTICASONE
  15. MAGNESIUM-OX [Concomitant]
  16. METFORMIN [Concomitant]
     Active Substance: METFORMIN HYDROCHLORIDE
  17. OMEPRAZOLE. [Concomitant]
     Active Substance: OMEPRAZOLE
  18. GABAPENTIN. [Concomitant]
     Active Substance: GABAPENTIN

REACTIONS (1)
  - Metastases to liver [None]

NARRATIVE: CASE EVENT DATE: 20200320
